FAERS Safety Report 15505894 (Version 2)
Quarter: 2019Q4

REPORT INFORMATION
  Report Type: Spontaneous
  Country: US (occurrence: US)
  Receive Date: 20181016
  Receipt Date: 20191014
  Transmission Date: 20200122
  Serious: No
  Sender: FDA-Public Use
  Company Number: US-PFIZER INC-2018413740

PATIENT
  Age: 49 Year
  Sex: Male
  Weight: 127.1 kg

DRUGS (15)
  1. LYRICA [Suspect]
     Active Substance: PREGABALIN
     Indication: PAIN
  2. LYRICA [Suspect]
     Active Substance: PREGABALIN
     Indication: OSTEOARTHRITIS
  3. LYRICA [Suspect]
     Active Substance: PREGABALIN
     Indication: ANALGESIC INTERVENTION SUPPORTIVE THERAPY
  4. LYRICA [Suspect]
     Active Substance: PREGABALIN
     Indication: NEUROPATHY PERIPHERAL
     Dosage: 100 MG, 4X/DAY (EVERY 6 HOURS)
     Route: 048
     Dates: start: 2017
  5. LYRICA [Suspect]
     Active Substance: PREGABALIN
     Indication: TYPE 2 DIABETES MELLITUS
  6. LYRICA [Suspect]
     Active Substance: PREGABALIN
     Indication: SLEEP APNOEA SYNDROME
  7. LYRICA [Suspect]
     Active Substance: PREGABALIN
     Indication: ARTHRALGIA
  8. LYRICA [Suspect]
     Active Substance: PREGABALIN
     Indication: SPINAL DISORDER
  9. LYRICA [Suspect]
     Active Substance: PREGABALIN
     Indication: SCIATICA
  10. LYRICA [Suspect]
     Active Substance: PREGABALIN
     Indication: DIABETIC NEPHROPATHY
     Dosage: 100 MG, 3X/DAY
     Route: 048
  11. LYRICA [Suspect]
     Active Substance: PREGABALIN
     Indication: SPINAL OSTEOARTHRITIS
  12. LYRICA [Suspect]
     Active Substance: PREGABALIN
     Indication: BACK PAIN
  13. LYRICA [Suspect]
     Active Substance: PREGABALIN
     Indication: MUSCLE SPASMS
  14. LYRICA [Suspect]
     Active Substance: PREGABALIN
     Indication: LUMBAR RADICULOPATHY
  15. LYRICA [Suspect]
     Active Substance: PREGABALIN
     Indication: SCIATICA

REACTIONS (2)
  - Sleep disorder [Not Recovered/Not Resolved]
  - Nervousness [Not Recovered/Not Resolved]

NARRATIVE: CASE EVENT DATE: 20181004
